FAERS Safety Report 5602698-9 (Version None)
Quarter: 2008Q1

REPORT INFORMATION
  Report Type: 
  Country: None (occurrence: None)
  Receive Date: 20080125
  Receipt Date: 20080114
  Transmission Date: 20080703
  Serious: Yes (Death, Life-Threatening, Hospitalization)
  Sender: FDA-Public Use
  Company Number: DE-GENENTECH-244852

PATIENT
  Age: 60 Year
  Sex: Female

DRUGS (8)
  1. AVASTIN [Suspect]
     Indication: NEOPLASM
     Dosage: 400 MG, Q2W
     Dates: start: 20070516, end: 20070613
  2. PHENPROCOUMON [Suspect]
     Indication: THROMBOPHLEBITIS
     Dosage: 12 MG, QD
     Route: 048
     Dates: start: 20070703
  3. PHENPROCOUMON [Suspect]
     Dosage: 9 MG, QD
     Route: 048
     Dates: start: 20070704
  4. FLUOROURACIL [Concomitant]
     Indication: DRUG USE FOR UNKNOWN INDICATION
     Dates: start: 20070415, end: 20070615
  5. CONCOMITANT DRUG [Concomitant]
     Indication: DRUG USE FOR UNKNOWN INDICATION
     Dates: start: 20070415, end: 20070615
  6. PANTOZOL [Concomitant]
     Indication: DRUG USE FOR UNKNOWN INDICATION
  7. MCP [Concomitant]
     Indication: DRUG USE FOR UNKNOWN INDICATION
  8. BISOPROLOL/HYDROCHLOROTHIAZIDE [Concomitant]
     Indication: DRUG USE FOR UNKNOWN INDICATION

REACTIONS (6)
  - INFECTION [None]
  - MULTI-ORGAN FAILURE [None]
  - NECROSIS [None]
  - PULMONARY EMBOLISM [None]
  - SHOCK [None]
  - SYSTEMIC INFLAMMATORY RESPONSE SYNDROME [None]
